FAERS Safety Report 9915999 (Version 1)
Quarter: 2014Q1

REPORT INFORMATION
  Report Type: Spontaneous
  Country: US (occurrence: None)
  Receive Date: 20140219
  Receipt Date: 20140219
  Transmission Date: 20141002
  Serious: Yes (Other)
  Sender: FDA-Public Use
  Company Number: AUR-APL-2014-01732

PATIENT
  Sex: Female

DRUGS (1)
  1. VENLAFAXINE (VENLAFAXINE) [Suspect]
     Indication: PRODUCT USED FOR UNKNOWN INDICATION
     Dates: start: 201310

REACTIONS (10)
  - Mental disorder [None]
  - Emotional poverty [None]
  - Anger [None]
  - Agitation [None]
  - Confusional state [None]
  - Hallucination [None]
  - Memory impairment [None]
  - Marital problem [None]
  - Drug withdrawal syndrome [None]
  - Hostility [None]
